FAERS Safety Report 5258781-3 (Version None)
Quarter: 2007Q1

REPORT INFORMATION
  Report Type: 
  Country: None (occurrence: None)
  Receive Date: 20070306
  Receipt Date: 20070306
  Transmission Date: 20070707
  Serious: Yes (Hospitalization)
  Sender: FDA-Public Use
  Company Number: None

PATIENT
  Sex: Female
  Weight: 47 kg

DRUGS (4)
  1. CISPLATIN [Suspect]
     Dosage: 68 MG
  2. DOXORUBICIN HYDROCHLORIDE [Suspect]
     Dosage: 61 MG
  3. G-CSF (FILGRASTIM, AMGEN) [Suspect]
     Dosage: 1222 MCG
  4. TAXOL [Suspect]
     Dosage: 217 MG

REACTIONS (1)
  - NEUTROPENIA [None]
